FAERS Safety Report 9095205 (Version 1)
Quarter: 2013Q1

REPORT INFORMATION
  Report Type: Report from Study
  Country: US (occurrence: US)
  Receive Date: 20130131
  Receipt Date: 20130131
  Transmission Date: 20140127
  Serious: No
  Sender: FDA-Public Use
  Company Number: US-ABBOTT-12P-163-0978568-00

PATIENT
  Age: 51 Year
  Sex: Female

DRUGS (4)
  1. HUMIRA [Suspect]
     Indication: PSORIASIS
     Dates: start: 20120810
  2. ZOLOFT [Concomitant]
     Indication: DEPRESSION
  3. OMEPRAZOLE [Concomitant]
     Indication: GASTRIC DISORDER
  4. SLEEPING PILL [Concomitant]
     Indication: INSOMNIA
     Dosage: AT NIGHT

REACTIONS (5)
  - Cough [Recovered/Resolved]
  - Sneezing [Recovered/Resolved]
  - Sinus congestion [Recovered/Resolved]
  - Respiratory tract congestion [Recovered/Resolved]
  - Injection site pain [Recovered/Resolved]
